FAERS Safety Report 20759946 (Version 3)
Quarter: 2022Q2

REPORT INFORMATION
  Report Type: Spontaneous
  Country: US (occurrence: US)
  Receive Date: 20220427
  Receipt Date: 20220511
  Transmission Date: 20220721
  Serious: Yes (Other)
  Sender: FDA-Public Use
  Company Number: US-CELLTRION INC.-2022US004987

PATIENT

DRUGS (2)
  1. TRUXIMA [Suspect]
     Active Substance: RITUXIMAB-ABBS
     Indication: Follicular lymphoma
     Dosage: 800 MG, PREPARED FROM 500 MG VIAL X 1 AND 100 MG VIAL X 3 (ONE TIME DOSE (DAY ONE TO BE REPEATED EVE
     Route: 042
     Dates: start: 20220415
  2. TRUXIMA [Suspect]
     Active Substance: RITUXIMAB-ABBS
     Dosage: 800 MG, PREPARED FROM 500 MG VIAL X 1 AND 100 MG VIAL X 3 ONE TIME DOSE (DAY ONE TO BE REPEATED EVER
     Route: 042
     Dates: start: 20220415

REACTIONS (2)
  - Condition aggravated [Recovered/Resolved]
  - Infusion related reaction [Recovered/Resolved]

NARRATIVE: CASE EVENT DATE: 20220415
